FAERS Safety Report 8938908 (Version 1)
Quarter: 2012Q4

REPORT INFORMATION
  Report Type: 
  Country: US (occurrence: US)
  Receive Date: 20121203
  Receipt Date: 20121203
  Transmission Date: 20130627
  Serious: Yes (Life-Threatening, Other)
  Sender: FDA-Public Use
  Company Number: US-SANOFI-AVENTIS-2012SA086635

PATIENT
  Sex: Male

DRUGS (7)
  1. LANTUS [Suspect]
     Indication: DIABETES MELLITUS
     Dosage: Dose:30 unit(s)
     Route: 058
  2. LANTUS SOLOSTAR [Suspect]
     Indication: DIABETES MELLITUS
     Dosage: Dose:30 unit(s)
     Route: 058
     Dates: start: 2012
  3. SOLOSTAR [Suspect]
     Indication: DIABETES MELLITUS
     Dates: start: 2012
  4. HUMULIN R [Suspect]
     Route: 065
  5. HUMULIN R [Suspect]
     Dosage: Dose:25 unit(s)
     Route: 065
     Dates: start: 2012, end: 2012
  6. CORTICOSTEROID NOS [Concomitant]
  7. SIROLIMUS [Concomitant]
     Indication: CHEMOTHERAPY
     Route: 042

REACTIONS (8)
  - Herpes zoster [Recovered/Resolved]
  - Post herpetic neuralgia [Unknown]
  - Pulmonary mass [Unknown]
  - Gallbladder operation [Unknown]
  - Rotator cuff repair [Unknown]
  - Renal mass [Unknown]
  - Hypoglycaemic coma [Unknown]
  - Glycosylated haemoglobin increased [Unknown]
